FAERS Safety Report 6300887-1 (Version None)
Quarter: 2009Q3

REPORT INFORMATION
  Report Type: 
  Country: None (occurrence: None)
  Receive Date: 20090807
  Receipt Date: 20090803
  Transmission Date: 20100115
  Serious: Yes (Other)
  Sender: FDA-Public Use
  Company Number: US-BAYER-200926385NA

PATIENT
  Age: 92 Year
  Sex: Male
  Weight: 95 kg

DRUGS (1)
  1. MAGNEVIST [Suspect]
     Indication: ANGIOGRAM
     Dosage: TOTAL DAILY DOSE: 20 ML  UNIT DOSE: 50 ML
     Route: 042
     Dates: start: 20080731, end: 20080731

REACTIONS (3)
  - NEPHROGENIC SYSTEMIC FIBROSIS [None]
  - RASH PRURITIC [None]
  - SKIN LESION [None]
